FAERS Safety Report 17112698 (Version 1)
Quarter: 2019Q4

REPORT INFORMATION
  Report Type: Spontaneous
  Country: US (occurrence: US)
  Receive Date: 20191204
  Receipt Date: 20191204
  Transmission Date: 20200122
  Serious: No
  Sender: FDA-Public Use
  Company Number: US-PTC THERAPEUTICS, INC.-US-2019PTC001413

PATIENT
  Sex: Male

DRUGS (1)
  1. EMFLAZA [Suspect]
     Active Substance: DEFLAZACORT
     Indication: DUCHENNE MUSCULAR DYSTROPHY
     Dosage: 30 MG, QD
     Route: 048
     Dates: start: 20171009

REACTIONS (8)
  - Left ventricular dysfunction [Unknown]
  - Chest pain [Unknown]
  - Palpitations [Unknown]
  - Hypotonia [Unknown]
  - Right ventricular dysfunction [Unknown]
  - Cushingoid [Unknown]
  - Talipes [Unknown]
  - Arthralgia [Unknown]
